FAERS Safety Report 15549354 (Version 3)
Quarter: 2019Q1

REPORT INFORMATION
  Report Type: Spontaneous
  Country: US (occurrence: US)
  Receive Date: 20181025
  Receipt Date: 20190218
  Transmission Date: 20190417
  Serious: Yes (Other)
  Sender: FDA-Public Use
  Company Number: US-PFIZER INC-2018358313

PATIENT
  Age: 72 Year
  Sex: Female
  Weight: 104 kg

DRUGS (24)
  1. CELEBREX [Concomitant]
     Active Substance: CELECOXIB
     Indication: SPONDYLOLISTHESIS
     Dosage: 100 MG, 2X/DAY
     Route: 048
  2. NUCYNTA [Concomitant]
     Active Substance: TAPENTADOL HYDROCHLORIDE
     Indication: BACK PAIN
     Dosage: 50 MG, 2X/DAY
     Route: 048
  3. HYDROCODONE [Concomitant]
     Active Substance: HYDROCODONE
     Dosage: UNK
  4. SKELAXIN [METAXALONE] [Concomitant]
     Indication: BACK PAIN
  5. LYRICA [Suspect]
     Active Substance: PREGABALIN
     Indication: SPONDYLOLISTHESIS
     Dosage: 150 MG, 2X/DAY
     Route: 048
     Dates: start: 2016
  6. LYRICA [Suspect]
     Active Substance: PREGABALIN
     Indication: NEUROPATHY PERIPHERAL
     Dosage: 150 MG, 3X/DAY
     Route: 048
  7. LYRICA [Suspect]
     Active Substance: PREGABALIN
     Indication: NERVE INJURY
  8. LYRICA [Suspect]
     Active Substance: PREGABALIN
     Indication: FIBROMYALGIA
  9. LYRICA [Suspect]
     Active Substance: PREGABALIN
     Indication: BACK PAIN
  10. CELEBREX [Concomitant]
     Active Substance: CELECOXIB
     Indication: INTERVERTEBRAL DISC DISORDER
     Dosage: 200 MG, 2X/DAY
     Route: 048
  11. SKELAXIN [METAXALONE] [Concomitant]
     Indication: INTERVERTEBRAL DISC DISORDER
     Dosage: 800 MG, 2X/DAY
     Route: 048
  12. XARELTO [Concomitant]
     Active Substance: RIVAROXABAN
     Indication: THROMBOSIS
     Dosage: 20 MG, 1X/DAY
     Route: 048
     Dates: start: 201708
  13. CELEBREX [Concomitant]
     Active Substance: CELECOXIB
     Indication: NEUROPATHY PERIPHERAL
  14. CELEBREX [Concomitant]
     Active Substance: CELECOXIB
     Indication: NERVE INJURY
  15. CELEBREX [Concomitant]
     Active Substance: CELECOXIB
     Indication: NEURALGIA
  16. SKELAXIN [METAXALONE] [Concomitant]
     Indication: SPONDYLOLISTHESIS
     Dosage: UNK
     Route: 048
  17. LYRICA [Suspect]
     Active Substance: PREGABALIN
     Indication: INTERVERTEBRAL DISC DISORDER
     Dosage: 150 MG, 3X/DAY
     Route: 048
     Dates: start: 2018, end: 201808
  18. SKELAXIN [METAXALONE] [Concomitant]
     Indication: NEUROPATHY PERIPHERAL
     Dosage: 800 MG, 3X/DAY
     Route: 048
     Dates: start: 2016
  19. SKELAXIN [METAXALONE] [Concomitant]
     Indication: NERVE INJURY
  20. LYRICA [Suspect]
     Active Substance: PREGABALIN
     Indication: NEURALGIA
  21. CELEBREX [Concomitant]
     Active Substance: CELECOXIB
     Indication: BACK PAIN
  22. LYRICA [Suspect]
     Active Substance: PREGABALIN
     Indication: PROCEDURAL PAIN
  23. LYRICA [Suspect]
     Active Substance: PREGABALIN
     Indication: MUSCULOSKELETAL PAIN
  24. SKELAXIN [METAXALONE] [Concomitant]
     Indication: NEURALGIA

REACTIONS (6)
  - Condition aggravated [Unknown]
  - Loss of personal independence in daily activities [Unknown]
  - Pain [Unknown]
  - Gastroenteritis viral [Recovering/Resolving]
  - Intentional product misuse [Unknown]
  - Gait disturbance [Unknown]

NARRATIVE: CASE EVENT DATE: 201807
